FAERS Safety Report 5297602-X (Version None)
Quarter: 2007Q2

REPORT INFORMATION
  Report Type: 
  Country: None (occurrence: None)
  Receive Date: 20070409
  Receipt Date: 20070323
  Transmission Date: 20071010
  Serious: Yes (Other)
  Sender: FDA-Public Use
  Company Number: 2007JP001231

PATIENT
  Age: 16 Year
  Sex: Male

DRUGS (2)
  1. PROGRAF [Suspect]
     Indication: BONE MARROW TRANSPLANT
  2. PREDNISOLONE [Concomitant]

REACTIONS (4)
  - HERPES ZOSTER [None]
  - NECROTISING HERPETIC RETINOPATHY [None]
  - RETINAL TEAR [None]
  - VISUAL FIELD DEFECT [None]
